FAERS Safety Report 5425141-1 (Version None)
Quarter: 2007Q3

REPORT INFORMATION
  Report Type: 
  Country: None (occurrence: None)
  Receive Date: 20070824
  Receipt Date: 20070816
  Transmission Date: 20080115
  Serious: Yes (Other)
  Sender: FDA-Public Use
  Company Number: US-ROCHE-507789

PATIENT
  Age: 19 Year
  Sex: Female

DRUGS (2)
  1. ACCUTANE [Suspect]
     Indication: ACNE
     Dosage: ACCUTANE WAS DISPENSED 14 MARCH 2007.
     Route: 048
     Dates: start: 20070314, end: 20070718
  2. CLARAVIS [Suspect]
     Indication: DRUG USE FOR UNKNOWN INDICATION
     Dosage: CLARAVIS WAS DISPENSED 17 APRIL 2007.
     Route: 048

REACTIONS (6)
  - ARTHRALGIA [None]
  - BACK PAIN [None]
  - BLOOD TRIGLYCERIDES INCREASED [None]
  - HEADACHE [None]
  - MIGRAINE [None]
  - PHOTOPSIA [None]
